FAERS Safety Report 25379563 (Version 1)
Quarter: 2025Q2

REPORT INFORMATION
  Report Type: Spontaneous
  Country: BR (occurrence: BR)
  Receive Date: 20250530
  Receipt Date: 20250530
  Transmission Date: 20250717
  Serious: Yes (Other)
  Sender: MYLAN
  Company Number: BR-MYLANLABS-2025M1045259

PATIENT
  Age: 42 Year
  Sex: Male

DRUGS (32)
  1. MOXIFLOXACIN [Suspect]
     Active Substance: MOXIFLOXACIN
     Indication: Sinusitis
     Dosage: 800 MILLIGRAM, QD
  2. MOXIFLOXACIN [Suspect]
     Active Substance: MOXIFLOXACIN
     Dosage: 800 MILLIGRAM, QD
     Route: 065
  3. MOXIFLOXACIN [Suspect]
     Active Substance: MOXIFLOXACIN
     Dosage: 800 MILLIGRAM, QD
     Route: 065
  4. MOXIFLOXACIN [Suspect]
     Active Substance: MOXIFLOXACIN
     Dosage: 800 MILLIGRAM, QD
  5. LATANOPROST [Suspect]
     Active Substance: LATANOPROST
     Indication: Iris transillumination defect
  6. LATANOPROST [Suspect]
     Active Substance: LATANOPROST
     Route: 065
  7. LATANOPROST [Suspect]
     Active Substance: LATANOPROST
     Route: 065
  8. LATANOPROST [Suspect]
     Active Substance: LATANOPROST
  9. TIMOLOL MALEATE [Suspect]
     Active Substance: TIMOLOL MALEATE
     Indication: Pigmentary glaucoma
  10. TIMOLOL MALEATE [Suspect]
     Active Substance: TIMOLOL MALEATE
     Indication: Iris transillumination defect
     Route: 065
  11. TIMOLOL MALEATE [Suspect]
     Active Substance: TIMOLOL MALEATE
     Route: 065
  12. TIMOLOL MALEATE [Suspect]
     Active Substance: TIMOLOL MALEATE
  13. PILOCARPINE [Suspect]
     Active Substance: PILOCARPINE
     Indication: Pigmentary glaucoma
     Dosage: UNK UNK, BID
  14. PILOCARPINE [Suspect]
     Active Substance: PILOCARPINE
     Indication: Iris transillumination defect
     Dosage: UNK UNK, BID
     Route: 065
  15. PILOCARPINE [Suspect]
     Active Substance: PILOCARPINE
     Dosage: UNK UNK, BID
     Route: 065
  16. PILOCARPINE [Suspect]
     Active Substance: PILOCARPINE
     Dosage: UNK UNK, BID
  17. MANNITOL [Suspect]
     Active Substance: MANNITOL
     Indication: Iris transillumination defect
  18. MANNITOL [Suspect]
     Active Substance: MANNITOL
     Route: 042
  19. MANNITOL [Suspect]
     Active Substance: MANNITOL
     Route: 042
  20. MANNITOL [Suspect]
     Active Substance: MANNITOL
  21. BRIMONIDINE TARTRATE [Suspect]
     Active Substance: BRIMONIDINE TARTRATE
     Indication: Iris transillumination defect
  22. BRIMONIDINE TARTRATE [Suspect]
     Active Substance: BRIMONIDINE TARTRATE
     Route: 065
  23. BRIMONIDINE TARTRATE [Suspect]
     Active Substance: BRIMONIDINE TARTRATE
     Route: 065
  24. BRIMONIDINE TARTRATE [Suspect]
     Active Substance: BRIMONIDINE TARTRATE
  25. ACETAZOLAMIDE [Suspect]
     Active Substance: ACETAZOLAMIDE
     Indication: Iris transillumination defect
     Dosage: 250 MILLIGRAM, Q6H
  26. ACETAZOLAMIDE [Suspect]
     Active Substance: ACETAZOLAMIDE
     Dosage: 250 MILLIGRAM, Q6H
     Route: 048
  27. ACETAZOLAMIDE [Suspect]
     Active Substance: ACETAZOLAMIDE
     Dosage: 250 MILLIGRAM, Q6H
     Route: 048
  28. ACETAZOLAMIDE [Suspect]
     Active Substance: ACETAZOLAMIDE
     Dosage: 250 MILLIGRAM, Q6H
  29. VALACYCLOVIR [Concomitant]
     Active Substance: VALACYCLOVIR HYDROCHLORIDE
     Indication: Antiviral treatment
     Dosage: 2000 MILLIGRAM, QD (FOR 2?8 WEEKS)
  30. VALACYCLOVIR [Concomitant]
     Active Substance: VALACYCLOVIR HYDROCHLORIDE
     Dosage: 2000 MILLIGRAM, QD (FOR 2?8 WEEKS)
     Route: 048
  31. VALACYCLOVIR [Concomitant]
     Active Substance: VALACYCLOVIR HYDROCHLORIDE
     Dosage: 2000 MILLIGRAM, QD (FOR 2?8 WEEKS)
     Route: 048
  32. VALACYCLOVIR [Concomitant]
     Active Substance: VALACYCLOVIR HYDROCHLORIDE
     Dosage: 2000 MILLIGRAM, QD (FOR 2?8 WEEKS)

REACTIONS (7)
  - Drug ineffective [Unknown]
  - Pigmentary glaucoma [Recovering/Resolving]
  - Iris transillumination defect [Recovering/Resolving]
  - Eye pain [Recovering/Resolving]
  - Ocular hyperaemia [Recovering/Resolving]
  - Photophobia [Recovering/Resolving]
  - Vision blurred [Recovering/Resolving]
